FAERS Safety Report 7076390-0 (Version None)
Quarter: 2010Q4

REPORT INFORMATION
  Report Type: 
  Country: None (occurrence: None)
  Receive Date: 20101022
  Receipt Date: 20101008
  Transmission Date: 20110411
  Serious: Yes (Death, Other)
  Sender: FDA-Public Use
  Company Number: 011408

PATIENT
  Age: 38 Year
  Sex: Female

DRUGS (2)
  1. BUSULFEX [Suspect]
     Indication: BONE MARROW CONDITIONING REGIMEN
  2. CYCLOPHOSPHAMIDE [Concomitant]

REACTIONS (9)
  - ACUTE GRAFT VERSUS HOST DISEASE [None]
  - ACUTE LUNG INJURY [None]
  - CHRONIC GRAFT VERSUS HOST DISEASE [None]
  - DISSEMINATED INTRAVASCULAR COAGULATION [None]
  - GRAFT VERSUS HOST DISEASE IN LUNG [None]
  - NEPHROPATHY TOXIC [None]
  - PYREXIA [None]
  - RENAL FAILURE [None]
  - RESPIRATORY FAILURE [None]
